FAERS Safety Report 14241471 (Version 1)
Quarter: 2017Q4

REPORT INFORMATION
  Report Type: Spontaneous
  Country: ZA (occurrence: ZA)
  Receive Date: 20171201
  Receipt Date: 20171201
  Transmission Date: 20180321
  Serious: No
  Sender: FDA-Public Use
  Company Number: ZA-LUPIN PHARMACEUTICALS INC.-2017-05399

PATIENT
  Sex: Female

DRUGS (5)
  1. ADCO-RETIC [Concomitant]
     Active Substance: AMILORIDE HYDROCHLORIDE\HYDROCHLOROTHIAZIDE
     Indication: DIURETIC THERAPY
     Dosage: 5/50 MG, QD
     Route: 048
  2. ZARTAN [Suspect]
     Active Substance: LOSARTAN POTASSIUM
     Indication: HYPERTENSION
     Dosage: 100 MG, QD
     Route: 048
     Dates: end: 201707
  3. AMLOC                              /00550802/ [Concomitant]
     Indication: HYPERTENSION
     Dosage: 5 MG, QD
     Route: 048
  4. CARLOC [Concomitant]
     Active Substance: CARVEDILOL
     Indication: HYPERTENSION
     Dosage: 25 MG, QD
     Route: 048
  5. ACCORD LETROZOLE [Concomitant]
     Active Substance: LETROZOLE
     Indication: NEOPLASM MALIGNANT

REACTIONS (2)
  - Blood pressure inadequately controlled [Unknown]
  - Drug ineffective [Unknown]
